FAERS Safety Report 21165218 (Version 4)
Quarter: 2024Q1

REPORT INFORMATION
  Report Type: Spontaneous
  Country: US (occurrence: None)
  Receive Date: 20220803
  Receipt Date: 20240227
  Transmission Date: 20240409
  Serious: Yes (Other)
  Sender: FDA-Public Use
  Company Number: US-ROCHE-3152215

PATIENT
  Age: 35 Year
  Sex: Female

DRUGS (3)
  1. OCREVUS [Suspect]
     Active Substance: OCRELIZUMAB
     Indication: Multiple sclerosis
     Dosage: STRENGTH:300MG/10ML
     Route: 042
     Dates: start: 202107
  2. BENADRYL [Concomitant]
     Active Substance: DIPHENHYDRAMINE HYDROCHLORIDE
  3. ONDANSETRON [Concomitant]
     Active Substance: ONDANSETRON

REACTIONS (8)
  - Multiple sclerosis relapse [Unknown]
  - Nausea [Unknown]
  - Pruritus [Unknown]
  - Pharyngeal swelling [Unknown]
  - Tachycardia [Unknown]
  - Thyroid mass [Unknown]
  - Multiple sclerosis [Unknown]
  - Migraine [Unknown]
